FAERS Safety Report 6321616-1 (Version None)
Quarter: 2009Q3

REPORT INFORMATION
  Report Type: 
  Country: None (occurrence: None)
  Receive Date: 20090821
  Receipt Date: 20090821
  Transmission Date: 20100115
  Serious: Yes (Disabling)
  Sender: FDA-Public Use
  Company Number: None

PATIENT
  Age: 65 Year
  Sex: Female
  Weight: 68.9467 kg

DRUGS (2)
  1. ACTONEL [Suspect]
     Indication: OSTEOPENIA
     Dosage: 1 ONCE MONTH
     Dates: start: 20090501
  2. ACTONEL [Suspect]
     Indication: RESORPTION BONE INCREASED
     Dosage: 1 ONCE MONTH
     Dates: start: 20090501

REACTIONS (2)
  - BACK PAIN [None]
  - NECK PAIN [None]
